FAERS Safety Report 21167297 (Version 4)
Quarter: 2022Q4

REPORT INFORMATION
  Report Type: Spontaneous
  Country: JP (occurrence: JP)
  Receive Date: 20220803
  Receipt Date: 20221117
  Transmission Date: 20230112
  Serious: Yes (Other)
  Sender: FDA-Public Use
  Company Number: JP-MTPC-MTPC2022-0020335

PATIENT
  Age: 65 Year
  Sex: Female

DRUGS (15)
  1. REMICADE [Suspect]
     Active Substance: INFLIXIMAB
     Indication: Rheumatoid arthritis
     Dosage: UNK
     Route: 041
  2. REMICADE [Suspect]
     Active Substance: INFLIXIMAB
     Dosage: UNK
     Route: 041
  3. REMICADE [Suspect]
     Active Substance: INFLIXIMAB
     Dosage: 400 MILLIGRAM, QD START DEAT 09-MAY-2022
     Route: 041
     Dates: end: 20220509
  4. ACTEMRA [Concomitant]
     Active Substance: TOCILIZUMAB
     Route: 065
  5. METHOTREXATE [Concomitant]
     Active Substance: METHOTREXATE
     Indication: Rheumatoid arthritis
     Dosage: 6 MILLIGRAM, 1/WEEK
     Route: 048
     Dates: end: 20200620
  6. PREDONINE [Concomitant]
     Active Substance: PREDNISOLONE
     Indication: Rheumatoid arthritis
     Dosage: 20 MILLIGRAM, Q8WEEKS
     Route: 048
     Dates: end: 20200620
  7. CANAGLIFLOZIN [Concomitant]
     Active Substance: CANAGLIFLOZIN
     Indication: Diabetes mellitus
     Dosage: 100 MILLIGRAM, QD
     Route: 048
  8. FOLIC ACID [Concomitant]
     Active Substance: FOLIC ACID
     Dosage: 10 MILLIGRAM, QD
     Route: 048
  9. JANUVIA [Concomitant]
     Active Substance: SITAGLIPTIN PHOSPHATE
     Indication: Diabetes mellitus
     Dosage: 25 MILLIGRAM, QD
     Route: 048
  10. AMLODIPINE BESYLATE [Concomitant]
     Active Substance: AMLODIPINE BESYLATE
     Indication: Hypertension
     Dosage: 5 MILLIGRAM, QD
     Route: 048
  11. LIPITOR [Concomitant]
     Active Substance: ATORVASTATIN CALCIUM
     Indication: Hyperlipidaemia
     Dosage: 5 MILLIGRAM, QD
     Route: 048
  12. MIGLITOL [Concomitant]
     Active Substance: MIGLITOL
     Indication: Diabetes mellitus
     Dosage: 75 DOSAGE FORM, TID
     Route: 048
  13. OLMESARTAN [Concomitant]
     Active Substance: OLMESARTAN
     Indication: Hypertension
     Dosage: 10 MILLIGRAM, QD
     Route: 048
  14. ALESION [Concomitant]
     Active Substance: EPINASTINE HYDROCHLORIDE
     Indication: Seasonal allergy
     Dosage: 20 MILLIGRAM, QD
     Route: 048
  15. BIOTIN [Concomitant]
     Active Substance: BIOTIN
     Indication: Rheumatoid arthritis
     Dosage: 2 GRAM, QD
     Route: 048

REACTIONS (3)
  - IgA nephropathy [Recovering/Resolving]
  - Urinary occult blood [Recovering/Resolving]
  - Protein urine [Recovering/Resolving]

NARRATIVE: CASE EVENT DATE: 20220117
